FAERS Safety Report 4959287-9 (Version None)
Quarter: 2006Q1

REPORT INFORMATION
  Report Type: 
  Country: None (occurrence: None)
  Receive Date: 20060130
  Receipt Date: 20050830
  Transmission Date: 20060701
  Serious: Yes (Other)
  Sender: FDA-Public Use
  Company Number: 143003USA

PATIENT
  Age: 41 Year
  Sex: Female

DRUGS (8)
  1. COPAXONE [Suspect]
     Indication: MULTIPLE SCLEROSIS
     Dates: end: 20050826
  2. MIDRIN [Concomitant]
  3. NEURONTIN [Concomitant]
  4. TOPAMAX [Concomitant]
  5. KLONOPIN [Concomitant]
  6. BACLOFEN [Concomitant]
  7. MARINOL [Concomitant]
  8. PROVIGIL [Concomitant]

REACTIONS (1)
  - SYNCOPE [None]
